FAERS Safety Report 8604329-2 (Version None)
Quarter: 2012Q3

REPORT INFORMATION
  Report Type: 
  Country: None (occurrence: None)
  Receive Date: 20120820
  Receipt Date: 20120809
  Transmission Date: 20120928
  Serious: Yes (Hospitalization)
  Sender: FDA-Public Use
  Company Number: CA-JNJFOC-20120701807

PATIENT
  Sex: Female

DRUGS (1)
  1. REMICADE [Suspect]
     Indication: RHEUMATOID ARTHRITIS
     Dosage: 3 VIALS
     Route: 042
     Dates: start: 20080501, end: 20120701

REACTIONS (4)
  - BIOPSY LUNG [None]
  - ABDOMINAL PAIN UPPER [None]
  - INFECTION [None]
  - INFLAMMATION [None]
